FAERS Safety Report 8067671-2 (Version None)
Quarter: 2012Q1

REPORT INFORMATION
  Report Type: 
  Country: None (occurrence: None)
  Receive Date: 20120124
  Receipt Date: 20120111
  Transmission Date: 20120608
  Serious: Yes (Other)
  Sender: FDA-Public Use
  Company Number: JP-ELI_LILLY_AND_COMPANY-JP201201003255

PATIENT
  Age: 67 Year
  Sex: Male

DRUGS (3)
  1. ALIMTA [Suspect]
     Indication: LUNG NEOPLASM MALIGNANT
     Dosage: 800 MG, UNK
     Route: 042
     Dates: start: 20120105
  2. PARAPLATIN [Concomitant]
     Indication: LUNG NEOPLASM MALIGNANT
  3. DEXAMETHASONE SODIUM PHOSPHATE [Concomitant]

REACTIONS (2)
  - ERYTHEMA [None]
  - ASTHMA [None]
